FAERS Safety Report 13503550 (Version 1)
Quarter: 2017Q2

REPORT INFORMATION
  Report Type: Spontaneous
  Country: BR (occurrence: BR)
  Receive Date: 20170502
  Receipt Date: 20170502
  Transmission Date: 20170830
  Serious: Yes (Hospitalization, Other)
  Sender: FDA-Public Use
  Company Number: BR-PFIZER INC-2017184269

PATIENT
  Age: 80 Year
  Sex: Male

DRUGS (11)
  1. TAXOTERE [Suspect]
     Active Substance: DOCETAXEL
     Dosage: 54.3 MG, CYCLIC (EVERY CYCLE)
     Route: 042
     Dates: start: 20161209, end: 20161209
  2. METAMIZOLE [Concomitant]
     Active Substance: METAMIZOLE
     Dosage: UNK
  3. DECADRON [Concomitant]
     Active Substance: DEXAMETHASONE
     Dosage: UNK
  4. LANTUS [Concomitant]
     Active Substance: INSULIN GLARGINE
     Dosage: UNK
  5. INSULIN, REGULAR [Concomitant]
     Active Substance: INSULIN NOS
     Dosage: UNK
  6. ARADOIS [Concomitant]
     Active Substance: LOSARTAN POTASSIUM
     Dosage: UNK
  7. ATLANSIL [Suspect]
     Active Substance: AMIODARONE
     Indication: ATRIAL FIBRILLATION
     Dosage: UNK
     Route: 065
  8. TAXOTERE [Suspect]
     Active Substance: DOCETAXEL
     Indication: PROSTATE CANCER
     Dosage: 54.3 MG, CYCLIC (EVERY CYCLE)
     Route: 042
     Dates: start: 20160923, end: 20160923
  9. NAUSEDRON [Concomitant]
     Active Substance: ONDANSETRON HYDROCHLORIDE
     Dosage: UNK
  10. LOSARTAN. [Concomitant]
     Active Substance: LOSARTAN
     Dosage: UNK
  11. TAXOTERE [Suspect]
     Active Substance: DOCETAXEL
     Dosage: 54.3 MG, CYCLIC (EVERY CYCLE)
     Route: 042
     Dates: start: 20170217, end: 20170217

REACTIONS (10)
  - Diabetes mellitus [Recovered/Resolved]
  - Blood culture negative [Recovered/Resolved]
  - Procalcitonin abnormal [Recovered/Resolved]
  - Anal fissure [Recovered/Resolved]
  - Hypertension [Recovered/Resolved]
  - Atrial fibrillation [Recovered/Resolved]
  - Interstitial lung disease [Recovered/Resolved]
  - Pneumonia [Recovered/Resolved]
  - Product use in unapproved indication [Unknown]
  - Asthenia [Recovered/Resolved]
